FAERS Safety Report 21610872 (Version 2)
Quarter: 2022Q4

REPORT INFORMATION
  Report Type: Spontaneous
  Country: HR (occurrence: HR)
  Receive Date: 20221117
  Receipt Date: 20221202
  Transmission Date: 20230112
  Serious: Yes (Other)
  Sender: FDA-Public Use
  Company Number: HR-TEVA-2022-HR-2826187

PATIENT
  Age: 56 Year
  Sex: Female

DRUGS (5)
  1. ESCITALOPRAM [Interacting]
     Active Substance: ESCITALOPRAM OXALATE
     Indication: Depression
     Dosage: 10 MILLIGRAM DAILY;
     Route: 065
  2. ESCITALOPRAM [Interacting]
     Active Substance: ESCITALOPRAM OXALATE
     Dosage: 20 MILLIGRAM DAILY;
     Route: 065
  3. OXYCODONE [Interacting]
     Active Substance: OXYCODONE
     Indication: Back pain
     Dosage: 20 MILLIGRAM DAILY; SLOW-RELEASE
     Route: 065
  4. Pyridostigmin [Concomitant]
     Indication: Myasthenia gravis
     Dosage: 240 MILLIGRAM DAILY;
     Route: 065
  5. PREDNISONE [Concomitant]
     Active Substance: PREDNISONE
     Indication: Myasthenia gravis
     Dosage: 30 MILLIGRAM DAILY;
     Route: 065

REACTIONS (4)
  - Oromandibular dystonia [Recovering/Resolving]
  - Drug interaction [Unknown]
  - Respiratory distress [Recovering/Resolving]
  - Stridor [Recovering/Resolving]
